FAERS Safety Report 4883743-5 (Version None)
Quarter: 2006Q1

REPORT INFORMATION
  Report Type: 
  Country: None (occurrence: None)
  Receive Date: 20060118
  Receipt Date: 20051205
  Transmission Date: 20060701
  Serious: Yes (Other)
  Sender: FDA-Public Use
  Company Number: GB-ROCHE-427585

PATIENT
  Age: 50 Year
  Sex: Female
  Weight: 91.2 kg

DRUGS (2)
  1. XENICAL [Suspect]
     Indication: OBESITY
     Route: 048
     Dates: start: 20051006
  2. XENICAL [Suspect]
     Route: 048
     Dates: end: 20060105

REACTIONS (2)
  - COUGH [None]
  - WHEEZING [None]
